FAERS Safety Report 24746280 (Version 1)
Quarter: 2024Q4

REPORT INFORMATION
  Report Type: Spontaneous
  Country: US (occurrence: US)
  Receive Date: 20241218
  Receipt Date: 20241218
  Transmission Date: 20250115
  Serious: Yes (Other)
  Sender: DR REDDYS
  Company Number: US-DRL-USA-LIT/USA/24/0018522

PATIENT
  Age: 50 Year
  Sex: Female

DRUGS (4)
  1. DOXORUBICIN [Suspect]
     Active Substance: DOXORUBICIN
     Indication: Breast cancer
     Dosage: FOUR CYCLES
  2. CYCLOPHOSPHAMIDE [Suspect]
     Active Substance: CYCLOPHOSPHAMIDE
     Indication: Breast cancer
     Dosage: FOUR CYCLES
  3. TAMOXIFEN [Suspect]
     Active Substance: TAMOXIFEN
     Indication: Breast cancer
     Dosage: FOUR CYCLES
  4. PACLITAXEL [Suspect]
     Active Substance: PACLITAXEL
     Indication: Breast cancer
     Dosage: FOUR CYCLES

REACTIONS (8)
  - Acute myeloid leukaemia [Unknown]
  - Drug ineffective [Unknown]
  - Graft versus host disease [Unknown]
  - Gastrointestinal disorder [Unknown]
  - Multiple organ dysfunction syndrome [Unknown]
  - Neutropenic sepsis [Unknown]
  - Respiratory disorder [Unknown]
  - Product use in unapproved indication [Unknown]
